FAERS Safety Report 8057462-0 (Version None)
Quarter: 2012Q1

REPORT INFORMATION
  Report Type: 
  Country: None (occurrence: None)
  Receive Date: 20120119
  Receipt Date: 20120112
  Transmission Date: 20120608
  Serious: Yes (Hospitalization)
  Sender: FDA-Public Use
  Company Number: US-ROCHE-1031719

PATIENT
  Sex: Male
  Weight: 90 kg

DRUGS (10)
  1. FUROSEMIDE [Concomitant]
  2. MAGNE-B6 (UNK INGREDIENTS) [Concomitant]
  3. LUCENTIS [Suspect]
     Indication: MACULAR DEGENERATION
     Route: 050
  4. ASPIRIN [Concomitant]
  5. NEDAL [Concomitant]
  6. KALIPOZ [Concomitant]
  7. ALLOPURINOL [Concomitant]
  8. PLAVIX [Concomitant]
  9. CORDARONE [Concomitant]
  10. ZOCOR [Concomitant]

REACTIONS (1)
  - VISUAL ACUITY REDUCED [None]
